FAERS Safety Report 24020243 (Version 1)
Quarter: 2024Q2

REPORT INFORMATION
  Report Type: Spontaneous
  Country: US (occurrence: None)
  Receive Date: 20240627
  Receipt Date: 20240627
  Transmission Date: 20240716
  Serious: Yes (Hospitalization)
  Sender: FDA-Public Use
  Company Number: None

PATIENT
  Sex: Female

DRUGS (2)
  1. XELJANZ [Suspect]
     Active Substance: TOFACITINIB CITRATE
     Dosage: FREQUENCY : TWICE A DAY;?
     Route: 048
     Dates: start: 201808
  2. NAPROXEN [Concomitant]
     Active Substance: NAPROXEN

REACTIONS (5)
  - Joint swelling [None]
  - Arthralgia [None]
  - Condition aggravated [None]
  - Haematemesis [None]
  - Gastric perforation [None]
